FAERS Safety Report 14247907 (Version 13)
Quarter: 2018Q4

REPORT INFORMATION
  Report Type: Spontaneous
  Country: BR (occurrence: BR)
  Receive Date: 20171204
  Receipt Date: 20181219
  Transmission Date: 20190204
  Serious: Yes (Hospitalization, Other)
  Sender: FDA-Public Use
  Company Number: BR-GLAXOSMITHKLINE-BR2017GSK182008

PATIENT
  Age: 35 Year
  Sex: Female
  Weight: 70 kg

DRUGS (4)
  1. BENLYSTA [Suspect]
     Active Substance: BELIMUMAB
     Indication: SYSTEMIC LUPUS ERYTHEMATOSUS
     Dosage: 760 MG, UNK
     Dates: start: 20171025
  2. PREDNISONE. [Concomitant]
     Active Substance: PREDNISONE
     Indication: PRODUCT USED FOR UNKNOWN INDICATION
     Dosage: UNK
  3. DONAREN [Suspect]
     Active Substance: TRAZODONE HYDROCHLORIDE
     Indication: ANTIDEPRESSANT THERAPY
     Dosage: 150 MG, UNK
  4. AZATHIOPRINE. [Concomitant]
     Active Substance: AZATHIOPRINE
     Indication: PRODUCT USED FOR UNKNOWN INDICATION
     Dosage: UNK

REACTIONS (19)
  - Headache [Unknown]
  - Transfusion [Unknown]
  - Respiratory disorder [Unknown]
  - Underdose [Unknown]
  - Cholelithiasis [Unknown]
  - Influenza [Unknown]
  - Product availability issue [Unknown]
  - Product dose omission [Not Recovered/Not Resolved]
  - Inappropriate schedule of product administration [Recovered/Resolved]
  - Sinusitis [Recovered/Resolved]
  - Anaemia [Unknown]
  - Emphysema [Unknown]
  - Urinary tract infection [Unknown]
  - Abdominal pain [Unknown]
  - Weight increased [Unknown]
  - Bronchitis [Recovered/Resolved]
  - Asthma [Unknown]
  - Secretion discharge [Unknown]
  - Cataract operation [Unknown]

NARRATIVE: CASE EVENT DATE: 20171203
